FAERS Safety Report 8254326-4 (Version None)
Quarter: 2012Q2

REPORT INFORMATION
  Report Type: 
  Country: None (occurrence: None)
  Receive Date: 20120402
  Receipt Date: 20120323
  Transmission Date: 20120825
  Serious: No
  Sender: FDA-Public Use
  Company Number: US-AMGEN-USASP2012018938

PATIENT
  Sex: Female

DRUGS (2)
  1. ORENCIA [Concomitant]
  2. ENBREL [Suspect]
     Indication: RHEUMATOID ARTHRITIS
     Dosage: 50 MG, QWK
     Dates: start: 20010101

REACTIONS (10)
  - WHEEZING [None]
  - MOVEMENT DISORDER [None]
  - RESPIRATORY DISORDER [None]
  - GASTROINTESTINAL DISORDER [None]
  - SINUSITIS [None]
  - INJECTION SITE ERYTHEMA [None]
  - BLADDER DISORDER [None]
  - ARTHRALGIA [None]
  - INJECTION SITE PAIN [None]
  - JOINT SWELLING [None]
